FAERS Safety Report 25332154 (Version 1)
Quarter: 2025Q2

REPORT INFORMATION
  Report Type: Spontaneous
  Country: US (occurrence: US)
  Receive Date: 20250519
  Receipt Date: 20250519
  Transmission Date: 20250716
  Serious: Yes (Other)
  Sender: NOVO NORDISK
  Company Number: US-NOVOPROD-931136

PATIENT
  Sex: Female

DRUGS (1)
  1. VAGIFEM [Suspect]
     Active Substance: ESTRADIOL
     Indication: Product used for unknown indication
     Route: 067

REACTIONS (4)
  - Neoplasm malignant [Unknown]
  - Hysterectomy [Unknown]
  - Thrombosis [Unknown]
  - Breast pain [Unknown]
